FAERS Safety Report 5336201-8 (Version None)
Quarter: 2007Q2

REPORT INFORMATION
  Report Type: 
  Country: None (occurrence: None)
  Receive Date: 20070315
  Receipt Date: 20070115
  Transmission Date: 20071010
  Serious: No
  Sender: FDA-Public Use
  Company Number: BDI-009028

PATIENT
  Age: 53 Year
  Sex: Female
  Weight: 81.82 kg

DRUGS (1)
  1. MULTIHANCE [Suspect]
     Indication: NUCLEAR MAGNETIC RESONANCE IMAGING BRAIN
     Dosage: 18 ML ONCE SY
     Dates: start: 20070115, end: 20070115

REACTIONS (1)
  - HYPERSENSITIVITY [None]
